FAERS Safety Report 4801207-1 (Version None)
Quarter: 2005Q4

REPORT INFORMATION
  Report Type: 
  Country: None (occurrence: None)
  Receive Date: 20051011
  Receipt Date: 20050926
  Transmission Date: 20060501
  Serious: Yes (Other)
  Sender: FDA-Public Use
  Company Number: MK200509-0302-1

PATIENT
  Age: 34 Year
  Sex: Female

DRUGS (1)
  1. METHADOSE [Suspect]
     Indication: DEPENDENCE
     Dosage: 60 MG, QD

REACTIONS (10)
  - BLOOD POTASSIUM DECREASED [None]
  - DIZZINESS [None]
  - DRUG ABUSER [None]
  - ELECTROCARDIOGRAM QT CORRECTED INTERVAL PROLONGED [None]
  - ELECTROCARDIOGRAM U-WAVE ABNORMALITY [None]
  - FALL [None]
  - FATIGUE [None]
  - NAUSEA [None]
  - TORSADE DE POINTES [None]
  - VOMITING [None]
